FAERS Safety Report 9168644 (Version 1)
Quarter: 2013Q1

REPORT INFORMATION
  Report Type: Spontaneous
  Country: US (occurrence: None)
  Receive Date: 20130314
  Receipt Date: 20130314
  Transmission Date: 20140127
  Serious: Yes (Life-Threatening, Hospitalization)
  Sender: FDA-Public Use
  Company Number: None

PATIENT
  Age: 60 Year
  Sex: Male
  Weight: 82 kg

DRUGS (1)
  1. HEPARIN [Suspect]
     Indication: PULMONARY EMBOLISM
     Dates: start: 20120913, end: 20120913

REACTIONS (2)
  - Heparin-induced thrombocytopenia [None]
  - Drug specific antibody present [None]
